FAERS Safety Report 24211422 (Version 2)
Quarter: 2024Q3

REPORT INFORMATION
  Report Type: Report from Study
  Country: CN (occurrence: CN)
  Receive Date: 20240814
  Receipt Date: 20240925
  Transmission Date: 20241017
  Serious: Yes (Death, Other)
  Sender: SANOFI AVENTIS
  Company Number: CN-SA-2024SA239967

PATIENT
  Age: 61 Year
  Sex: Male

DRUGS (4)
  1. OXALIPLATIN [Suspect]
     Active Substance: OXALIPLATIN
     Indication: Oesophageal carcinoma
     Dosage: 215.8 MG
     Route: 042
     Dates: start: 20180427, end: 20180427
  2. CAPECITABINE [Concomitant]
     Active Substance: CAPECITABINE
     Indication: Oesophageal carcinoma
     Dosage: 0.15 MG, QD
     Route: 048
     Dates: start: 20180428
  3. CAPECITABINE [Concomitant]
     Active Substance: CAPECITABINE
     Dosage: (0.5 MG OF 3 TABLETS) 3DF, QD
     Route: 048
     Dates: start: 20180427, end: 20180428
  4. CAPECITABINE [Concomitant]
     Active Substance: CAPECITABINE
     Dosage: 3300 MG
     Route: 048
     Dates: start: 20180427, end: 20180428

REACTIONS (2)
  - Diarrhoea [Fatal]
  - Abdominal pain [Unknown]

NARRATIVE: CASE EVENT DATE: 20180507
